FAERS Safety Report 5204832-1 (Version None)
Quarter: 2007Q1

REPORT INFORMATION
  Report Type: 
  Country: None (occurrence: None)
  Receive Date: 20070110
  Receipt Date: 20060726
  Transmission Date: 20070707
  Serious: No
  Sender: FDA-Public Use
  Company Number: US-BRISTOL-MYERS SQUIBB COMPANY-13458070

PATIENT
  Age: 47 Year
  Sex: Female

DRUGS (9)
  1. ABILIFY [Suspect]
     Indication: MAJOR DEPRESSION
     Dates: end: 20060228
  2. ABILIFY [Suspect]
     Indication: POST-TRAUMATIC STRESS DISORDER
     Dates: end: 20060228
  3. WELLBUTRIN [Concomitant]
  4. CYMBALTA [Concomitant]
  5. LUNESTA [Concomitant]
  6. PRILOSEC [Concomitant]
  7. CYTOTEC [Concomitant]
  8. REGLAN [Concomitant]
  9. ZOFRAN [Concomitant]

REACTIONS (2)
  - CONTUSION [None]
  - PETECHIAE [None]
